FAERS Safety Report 13918339 (Version 1)
Quarter: 2017Q3

REPORT INFORMATION
  Report Type: Spontaneous
  Country: US (occurrence: US)
  Receive Date: 20170829
  Receipt Date: 20170829
  Transmission Date: 20171127
  Serious: No
  Sender: FDA-Public Use
  Company Number: US-SA-2017SA141951

PATIENT
  Age: 34 Year
  Sex: Male

DRUGS (2)
  1. FABRAZYME [Suspect]
     Active Substance: AGALSIDASE BETA
     Indication: FABRY^S DISEASE
     Route: 041
     Dates: start: 20170323, end: 20170727
  2. NEURONTIN [Concomitant]
     Active Substance: GABAPENTIN
     Indication: NEUROPATHY PERIPHERAL
     Route: 065

REACTIONS (2)
  - Tremor [Unknown]
  - Nausea [Unknown]

NARRATIVE: CASE EVENT DATE: 20170727
